FAERS Safety Report 5303244-X (Version None)
Quarter: 2007Q2

REPORT INFORMATION
  Report Type: 
  Country: None (occurrence: None)
  Receive Date: 20070420
  Receipt Date: 20070411
  Transmission Date: 20071010
  Serious: Yes (Other)
  Sender: FDA-Public Use
  Company Number: NLWYE797227FEB07

PATIENT
  Sex: Male
  Weight: 86 kg

DRUGS (3)
  1. ENBREL [Suspect]
     Indication: ANKYLOSING SPONDYLITIS
     Dates: start: 20060329, end: 20060601
  2. ENBREL [Suspect]
     Dates: start: 20060901, end: 20070222
  3. BUTAZOLIDIN [Suspect]
     Indication: ANKYLOSING SPONDYLITIS
     Dosage: 200 MG 1 OR 2 TIMES PER DAY
     Dates: start: 19970512, end: 20050615

REACTIONS (11)
  - AGITATION [None]
  - DEMENTIA [None]
  - DEMYELINATION [None]
  - DISORIENTATION [None]
  - DISTURBANCE IN ATTENTION [None]
  - DIZZINESS [None]
  - FEELING DRUNK [None]
  - HYPOAESTHESIA [None]
  - MEMORY IMPAIRMENT [None]
  - PREMATURE AGEING [None]
  - RESTLESSNESS [None]
